FAERS Safety Report 23651267 (Version 6)
Quarter: 2025Q4

REPORT INFORMATION
  Report Type: Spontaneous
  Country: CA (occurrence: CA)
  Receive Date: 20240320
  Receipt Date: 20251201
  Transmission Date: 20260117
  Serious: Yes (Death, Life-Threatening, Hospitalization, Disabling, Other)
  Sender: Haleon PLC
  Company Number: CA-002147023-NVSC2024CA054144

PATIENT
  Age: 43 Year
  Sex: Female
  Weight: 97 kg

DRUGS (486)
  1. DICLOFENAC DIETHYLAMINE [Suspect]
     Active Substance: DICLOFENAC DIETHYLAMINE
     Indication: Product used for unknown indication
  2. TUMS REGULAR STRENGTH [Suspect]
     Active Substance: CALCIUM CARBONATE
     Indication: Product used for unknown indication
  3. TUMS REGULAR STRENGTH [Suspect]
     Active Substance: CALCIUM CARBONATE
  4. PSEUDOEPHEDRINE [Suspect]
     Active Substance: PSEUDOEPHEDRINE
     Indication: Product used for unknown indication
     Dosage: 25 MG
  5. SULFAMETHOXAZOLE [Suspect]
     Active Substance: SULFAMETHOXAZOLE
     Indication: Product used for unknown indication
     Dosage: UNK
  6. SULFAMETHOXAZOLE [Suspect]
     Active Substance: SULFAMETHOXAZOLE
     Dosage: UNK
  7. OXYCODONE TEREPHTHALATE [Suspect]
     Active Substance: OXYCODONE TEREPHTHALATE
     Indication: Product used for unknown indication
     Dosage: UNK
  8. OXYCODONE TEREPHTHALATE [Suspect]
     Active Substance: OXYCODONE TEREPHTHALATE
     Dosage: UNK
  9. TRAMADOL HYDROCHLORIDE [Suspect]
     Active Substance: TRAMADOL HYDROCHLORIDE
     Indication: Product used for unknown indication
     Dosage: UNK
  10. TRAMADOL HYDROCHLORIDE [Suspect]
     Active Substance: TRAMADOL HYDROCHLORIDE
     Dosage: UNK
  11. TRAMADOL HYDROCHLORIDE [Suspect]
     Active Substance: TRAMADOL HYDROCHLORIDE
     Dosage: UNK
  12. TRAMADOL HYDROCHLORIDE [Suspect]
     Active Substance: TRAMADOL HYDROCHLORIDE
     Dosage: UNK
  13. CLIOQUINOL\FLUMETHASONE [Suspect]
     Active Substance: CLIOQUINOL\FLUMETHASONE
     Indication: Rheumatoid arthritis
     Dosage: UNK
  14. CLIOQUINOL\FLUMETHASONE [Suspect]
     Active Substance: CLIOQUINOL\FLUMETHASONE
     Dosage: UNK, SUBCUTANEOUS USE
  15. CLIOQUINOL\FLUMETHASONE [Suspect]
     Active Substance: CLIOQUINOL\FLUMETHASONE
     Dosage: SUBCUTANEOUS
  16. DICLOFENAC POTASSIUM [Suspect]
     Active Substance: DICLOFENAC POTASSIUM
     Indication: Product used for unknown indication
     Dosage: UNK
  17. DICLOFENAC POTASSIUM [Suspect]
     Active Substance: DICLOFENAC POTASSIUM
     Dosage: DOSE FORM: TABLET
  18. DICLOFENAC POTASSIUM [Suspect]
     Active Substance: DICLOFENAC POTASSIUM
     Dosage: TABLET
  19. CELECOXIB [Suspect]
     Active Substance: CELECOXIB
     Indication: Rheumatoid arthritis
     Dosage: 2 DOSAGE FORM, QD (1 EVERY 1 DAYS), TABLET, ORAL USE
  20. CELECOXIB [Suspect]
     Active Substance: CELECOXIB
     Dosage: UNK, QD, TABLET, ORAL USE
  21. CELECOXIB [Suspect]
     Active Substance: CELECOXIB
     Dosage: UNK
  22. CELECOXIB [Suspect]
     Active Substance: CELECOXIB
     Dosage: UNK, TABLET, ORAL USE
  23. CELECOXIB [Suspect]
     Active Substance: CELECOXIB
     Dosage: UNK, QD, TABLET, ORAL USE
  24. CELECOXIB [Suspect]
     Active Substance: CELECOXIB
     Dosage: UNK, TABLET
  25. CELECOXIB [Suspect]
     Active Substance: CELECOXIB
     Dosage: 200 MG, TABLET
  26. INFLIXIMAB [Suspect]
     Active Substance: INFLIXIMAB
     Indication: Rheumatoid arthritis
     Dosage: UNK
  27. INFLIXIMAB [Suspect]
     Active Substance: INFLIXIMAB
     Indication: Product used for unknown indication
     Dosage: UNK, DOSE FORM: POWDER FOR CONCENTRATE FOR SOLUTION FOR INFUSION AND ROA: INTRAVENOUS USE
  28. INFLIXIMAB [Suspect]
     Active Substance: INFLIXIMAB
     Dosage: UNK, DOSE FORM: POWDER FOR CONCENTRATE FOR SOLUTION FOR INFUSION AND ROA: INTRAVENOUS USE
  29. INFLIXIMAB [Suspect]
     Active Substance: INFLIXIMAB
     Dosage: 400 MG, DOSE FORM: POWDER FOR CONCENTRATE FOR SOLUTION FOR INFUSION AND ROA: INTRAVENOUS USE
  30. FOSAMAX [Suspect]
     Active Substance: ALENDRONATE SODIUM
     Indication: Rheumatoid arthritis
     Dosage: UNK
  31. FOSAMAX [Suspect]
     Active Substance: ALENDRONATE SODIUM
     Dosage: UNK, TABLET, ORAL USE
  32. FOSAMAX [Suspect]
     Active Substance: ALENDRONATE SODIUM
     Dosage: UNK, TABLET, ORAL USE
  33. DOXYCYCLINE HYCLATE [Suspect]
     Active Substance: DOXYCYCLINE HYCLATE
     Indication: Product used for unknown indication
     Dosage: 40 MG
  34. MYCOPHENOLATE MOFETIL [Suspect]
     Active Substance: MYCOPHENOLATE MOFETIL
     Indication: Product used for unknown indication
     Dosage: UNK
  35. MYCOPHENOLATE MOFETIL [Suspect]
     Active Substance: MYCOPHENOLATE MOFETIL
     Dosage: UNK
  36. MYCOPHENOLATE MOFETIL [Suspect]
     Active Substance: MYCOPHENOLATE MOFETIL
     Dosage: UNK
  37. ENBREL [Suspect]
     Active Substance: ETANERCEPT
     Indication: Rheumatoid arthritis
     Dosage: 50 MG
  38. ENBREL [Suspect]
     Active Substance: ETANERCEPT
     Indication: Product used for unknown indication
     Dosage: 50 MG, WE, ROA: SUBCUTANEOUS
  39. ENBREL [Suspect]
     Active Substance: ETANERCEPT
     Dosage: 50 MG, WE, SUBCUTANEOUS
  40. DICLOFENAC SODIUM [Suspect]
     Active Substance: DICLOFENAC SODIUM
     Indication: Product used for unknown indication
     Dosage: UNK
  41. DICLOFENAC SODIUM [Suspect]
     Active Substance: DICLOFENAC SODIUM
     Dosage: UNK
  42. DICLOFENAC SODIUM [Suspect]
     Active Substance: DICLOFENAC SODIUM
     Dosage: UNK
  43. DICLOFENAC SODIUM [Suspect]
     Active Substance: DICLOFENAC SODIUM
     Dosage: UNK
  44. DICLOFENAC SODIUM [Suspect]
     Active Substance: DICLOFENAC SODIUM
     Dosage: 50 MG
  45. CALCIUM LACTATE [Suspect]
     Active Substance: CALCIUM LACTATE
     Indication: Product used for unknown indication
     Dosage: UNK
  46. CALCIUM LACTATE [Suspect]
     Active Substance: CALCIUM LACTATE
     Dosage: UNK, DOSE FORM: TABLET
  47. CALCIUM LACTATE [Suspect]
     Active Substance: CALCIUM LACTATE
     Dosage: UNK, TABLET
  48. LYRICA [Suspect]
     Active Substance: PREGABALIN
     Indication: Product used for unknown indication
     Dosage: UNK
  49. LYRICA [Suspect]
     Active Substance: PREGABALIN
     Dosage: UNK, ROA: CAPSULE
  50. LYRICA [Suspect]
     Active Substance: PREGABALIN
     Dosage: UNK, ROA: CAPSULE
  51. RITUXIMAB [Suspect]
     Active Substance: RITUXIMAB
     Indication: Rheumatoid arthritis
     Dosage: UNK
  52. RITUXIMAB [Suspect]
     Active Substance: RITUXIMAB
     Dosage: UNK
  53. RITUXIMAB [Suspect]
     Active Substance: RITUXIMAB
     Dosage: UNK
  54. RITUXIMAB [Suspect]
     Active Substance: RITUXIMAB
     Dosage: UNK
  55. RITUXIMAB [Suspect]
     Active Substance: RITUXIMAB
     Dosage: 1 G
  56. RITUXIMAB [Suspect]
     Active Substance: RITUXIMAB
     Dosage: 3 MG
  57. RITUXIMAB [Suspect]
     Active Substance: RITUXIMAB
     Dosage: UNK
  58. RITUXIMAB [Suspect]
     Active Substance: RITUXIMAB
     Dosage: 1 MG
  59. METHOTREXATE SODIUM [Suspect]
     Active Substance: METHOTREXATE SODIUM
     Indication: Rheumatoid arthritis
     Dosage: UNK, DOSE FORM: CONCENTRATE FOR SOLUTION FOR INFUSION
  60. METHOTREXATE SODIUM [Suspect]
     Active Substance: METHOTREXATE SODIUM
     Dosage: 2 MG, QD, CONCENTRATE FOR SOLUTION FOR INFUSION, ORAL
  61. ISOPROPYL ALCOHOL [Suspect]
     Active Substance: ISOPROPYL ALCOHOL
     Indication: Product used for unknown indication
     Dosage: UNK (TOPICAL)
  62. ISOPROPYL ALCOHOL [Suspect]
     Active Substance: ISOPROPYL ALCOHOL
     Dosage: UNK (TOPICAL), LIQUID
  63. ISOPROPYL ALCOHOL [Suspect]
     Active Substance: ISOPROPYL ALCOHOL
     Dosage: UNK, LIQUID, ROA: TOPICAL
  64. PREGABALIN [Suspect]
     Active Substance: PREGABALIN
     Indication: Rheumatoid arthritis
     Dosage: UNK (PREGABALIN OD TABLETS)
  65. PREGABALIN [Suspect]
     Active Substance: PREGABALIN
     Indication: Product used for unknown indication
     Dosage: 40 MG, SOLUTION FOR INJECTION
  66. PREGABALIN [Suspect]
     Active Substance: PREGABALIN
     Dosage: 40 MG
  67. PREGABALIN [Suspect]
     Active Substance: PREGABALIN
     Dosage: 40 MG
  68. PREGABALIN [Suspect]
     Active Substance: PREGABALIN
     Dosage: 40 MG
  69. PREGABALIN [Suspect]
     Active Substance: PREGABALIN
     Dosage: UNK
  70. PREGABALIN [Suspect]
     Active Substance: PREGABALIN
     Dosage: 40 MG
  71. PREGABALIN [Suspect]
     Active Substance: PREGABALIN
     Dosage: UNK
  72. COSENTYX [Suspect]
     Active Substance: SECUKINUMAB
     Indication: Psoriatic arthropathy
     Dosage: UNK (SOLUTION) (PRE-FILLED SYRINGE. SINGLE USE)
  73. COSENTYX [Suspect]
     Active Substance: SECUKINUMAB
     Dosage: UNK
  74. COSENTYX [Suspect]
     Active Substance: SECUKINUMAB
     Dosage: UNK (SOLUTION)
  75. COSENTYX [Suspect]
     Active Substance: SECUKINUMAB
     Dosage: UNK
  76. FLUMETHASONE PIVALATE [Suspect]
     Active Substance: FLUMETHASONE PIVALATE
     Indication: Rheumatoid arthritis
     Dosage: UNK
  77. FLUMETHASONE PIVALATE [Suspect]
     Active Substance: FLUMETHASONE PIVALATE
     Dosage: UNK
  78. FLUMETHASONE PIVALATE [Suspect]
     Active Substance: FLUMETHASONE PIVALATE
     Dosage: UNK
  79. STELARA [Suspect]
     Active Substance: USTEKINUMAB
     Indication: Rheumatoid arthritis
     Dosage: UNK
  80. STELARA [Suspect]
     Active Substance: USTEKINUMAB
     Dosage: UNK, SOLUTION
  81. STELARA [Suspect]
     Active Substance: USTEKINUMAB
     Dosage: UNK
  82. STELARA [Suspect]
     Active Substance: USTEKINUMAB
     Dosage: UNK
  83. STELARA [Suspect]
     Active Substance: USTEKINUMAB
     Dosage: UNK, SOLUTION
  84. STELARA [Suspect]
     Active Substance: USTEKINUMAB
     Dosage: UNK
  85. STELARA [Suspect]
     Active Substance: USTEKINUMAB
     Dosage: 45 MG, SOLUTION, INTRAVENOUS USE
  86. STELARA [Suspect]
     Active Substance: USTEKINUMAB
     Dosage: 45 MG, SOLUTION, SUBCUTANEOUS USE
  87. OXYCODONE [Suspect]
     Active Substance: OXYCODONE
     Indication: Product used for unknown indication
     Dosage: UNK
  88. OXYCODONE [Suspect]
     Active Substance: OXYCODONE
     Dosage: UNK
  89. OXYCODONE [Suspect]
     Active Substance: OXYCODONE
     Dosage: UNK
  90. HYDROXYCHLOROQUINE SULFATE [Suspect]
     Active Substance: HYDROXYCHLOROQUINE SULFATE
     Indication: Rheumatoid arthritis
     Dosage: 400 MG, QD, TABLET, URETHRAL
  91. HYDROXYCHLOROQUINE SULFATE [Suspect]
     Active Substance: HYDROXYCHLOROQUINE SULFATE
     Indication: Product used for unknown indication
     Dosage: 400 MG, QD, TABLET, ORAL
  92. PHTHALYLSULFATHIAZOLE [Suspect]
     Active Substance: PHTHALYLSULFATHIAZOLE
     Indication: Rheumatoid arthritis
     Dosage: UNK
  93. PHTHALYLSULFATHIAZOLE [Suspect]
     Active Substance: PHTHALYLSULFATHIAZOLE
     Dosage: UNK, INTRAVENOUS USE
  94. PHTHALYLSULFATHIAZOLE [Suspect]
     Active Substance: PHTHALYLSULFATHIAZOLE
     Dosage: UNK
  95. PHTHALYLSULFATHIAZOLE [Suspect]
     Active Substance: PHTHALYLSULFATHIAZOLE
     Dosage: UNK, INTRAVENOUS (NOT OTHERWISE SPECIFIED)
  96. PHTHALYLSULFATHIAZOLE [Suspect]
     Active Substance: PHTHALYLSULFATHIAZOLE
     Dosage: UNK, INTRACARDIAC USE
  97. PHTHALYLSULFATHIAZOLE [Suspect]
     Active Substance: PHTHALYLSULFATHIAZOLE
     Dosage: 500 MG
  98. PHTHALYLSULFATHIAZOLE [Suspect]
     Active Substance: PHTHALYLSULFATHIAZOLE
     Dosage: 400 MG, QD (1 EVERY 1 DAYS)
  99. PHTHALYLSULFATHIAZOLE [Suspect]
     Active Substance: PHTHALYLSULFATHIAZOLE
     Dosage: 1000 MG, BID (2 EVERY 1 DAYS)
  100. CALCIUM CHLORIDE [Suspect]
     Active Substance: CALCIUM CHLORIDE
     Indication: Product used for unknown indication
     Dosage: UNK
  101. CALCIUM CHLORIDE [Suspect]
     Active Substance: CALCIUM CHLORIDE
     Dosage: UNK
  102. CALCIUM CHLORIDE [Suspect]
     Active Substance: CALCIUM CHLORIDE
     Dosage: UNK
  103. TOCILIZUMAB [Suspect]
     Active Substance: TOCILIZUMAB
     Indication: Product used for unknown indication
     Dosage: UNK
  104. TOCILIZUMAB [Suspect]
     Active Substance: TOCILIZUMAB
     Dosage: UNK, SUBCUTANEOUS USE
  105. TOCILIZUMAB [Suspect]
     Active Substance: TOCILIZUMAB
     Dosage: UNK
  106. TOCILIZUMAB [Suspect]
     Active Substance: TOCILIZUMAB
     Dosage: UNK
  107. TOCILIZUMAB [Suspect]
     Active Substance: TOCILIZUMAB
     Dosage: UNK
  108. TOCILIZUMAB [Suspect]
     Active Substance: TOCILIZUMAB
     Dosage: UNK, SUBCUTANEOUS
  109. ALENDRONIC ACID [Suspect]
     Active Substance: ALENDRONIC ACID
     Indication: Rheumatoid arthritis
     Dosage: UNK
  110. ALENDRONIC ACID [Suspect]
     Active Substance: ALENDRONIC ACID
     Indication: Product used for unknown indication
     Dosage: UNK, TABLET
  111. ALENDRONIC ACID [Suspect]
     Active Substance: ALENDRONIC ACID
     Dosage: UNK
  112. ALENDRONIC ACID [Suspect]
     Active Substance: ALENDRONIC ACID
     Dosage: UNK
  113. ALENDRONIC ACID [Suspect]
     Active Substance: ALENDRONIC ACID
     Dosage: UNK
  114. ALENDRONIC ACID [Suspect]
     Active Substance: ALENDRONIC ACID
     Dosage: UNK
  115. ALENDRONIC ACID [Suspect]
     Active Substance: ALENDRONIC ACID
     Dosage: UNK
  116. ALENDRONIC ACID [Suspect]
     Active Substance: ALENDRONIC ACID
     Dosage: UNK, TABLET, ORAL
  117. ALENDRONIC ACID [Suspect]
     Active Substance: ALENDRONIC ACID
     Dosage: UNK, TABLET
  118. ALENDRONIC ACID [Suspect]
     Active Substance: ALENDRONIC ACID
     Dosage: UNK, TABLET
  119. ALENDRONIC ACID [Suspect]
     Active Substance: ALENDRONIC ACID
     Dosage: UNK, TABLET, ORAL USE
  120. CERTOLIZUMAB PEGOL [Suspect]
     Active Substance: CERTOLIZUMAB PEGOL
     Indication: Product used for unknown indication
     Dosage: UNK
  121. CERTOLIZUMAB PEGOL [Suspect]
     Active Substance: CERTOLIZUMAB PEGOL
     Dosage: UNK
  122. CERTOLIZUMAB PEGOL [Suspect]
     Active Substance: CERTOLIZUMAB PEGOL
     Dosage: UNK
  123. CETIRIZINE HYDROCHLORIDE [Suspect]
     Active Substance: CETIRIZINE HYDROCHLORIDE
     Indication: Rheumatoid arthritis
     Dosage: UNK
  124. CETIRIZINE HYDROCHLORIDE [Suspect]
     Active Substance: CETIRIZINE HYDROCHLORIDE
     Dosage: UNK
  125. CETIRIZINE HYDROCHLORIDE [Suspect]
     Active Substance: CETIRIZINE HYDROCHLORIDE
     Dosage: UNK (500 UNK)
  126. CETIRIZINE HYDROCHLORIDE [Suspect]
     Active Substance: CETIRIZINE HYDROCHLORIDE
     Dosage: UNK
  127. CETIRIZINE HYDROCHLORIDE [Suspect]
     Active Substance: CETIRIZINE HYDROCHLORIDE
     Dosage: 10 MG
  128. CETIRIZINE HYDROCHLORIDE [Suspect]
     Active Substance: CETIRIZINE HYDROCHLORIDE
     Dosage: 25 MG
  129. CETIRIZINE HYDROCHLORIDE [Suspect]
     Active Substance: CETIRIZINE HYDROCHLORIDE
     Dosage: UNK (1 UNK)
  130. CETIRIZINE HYDROCHLORIDE [Suspect]
     Active Substance: CETIRIZINE HYDROCHLORIDE
     Dosage: 1 UNK
  131. CETIRIZINE HYDROCHLORIDE [Suspect]
     Active Substance: CETIRIZINE HYDROCHLORIDE
     Dosage: 25 MG
  132. CETIRIZINE HYDROCHLORIDE [Suspect]
     Active Substance: CETIRIZINE HYDROCHLORIDE
     Dosage: UNK
  133. CETIRIZINE HYDROCHLORIDE [Suspect]
     Active Substance: CETIRIZINE HYDROCHLORIDE
     Dosage: UNK
  134. CETIRIZINE HYDROCHLORIDE [Suspect]
     Active Substance: CETIRIZINE HYDROCHLORIDE
     Dosage: UNK
  135. CETIRIZINE HYDROCHLORIDE [Suspect]
     Active Substance: CETIRIZINE HYDROCHLORIDE
     Dosage: UNK
  136. CETIRIZINE HYDROCHLORIDE [Suspect]
     Active Substance: CETIRIZINE HYDROCHLORIDE
     Dosage: 10 MG
  137. CETIRIZINE HYDROCHLORIDE [Suspect]
     Active Substance: CETIRIZINE HYDROCHLORIDE
     Dosage: 500 UNK
  138. CETIRIZINE HYDROCHLORIDE [Suspect]
     Active Substance: CETIRIZINE HYDROCHLORIDE
     Dosage: UNK (1 UNK)
  139. CETIRIZINE HYDROCHLORIDE [Suspect]
     Active Substance: CETIRIZINE HYDROCHLORIDE
     Dosage: 1 UNK
  140. CETIRIZINE HYDROCHLORIDE [Suspect]
     Active Substance: CETIRIZINE HYDROCHLORIDE
     Dosage: 1 G
  141. CORTISONE ACETATE [Suspect]
     Active Substance: CORTISONE ACETATE
     Indication: Rheumatoid arthritis
     Dosage: 25 MG, DOSE FORM: OINTMENT
  142. CORTISONE ACETATE [Suspect]
     Active Substance: CORTISONE ACETATE
     Indication: Product used for unknown indication
     Dosage: UNK
  143. CORTISONE ACETATE [Suspect]
     Active Substance: CORTISONE ACETATE
     Dosage: UNK
  144. CORTISONE ACETATE [Suspect]
     Active Substance: CORTISONE ACETATE
     Dosage: UNK
  145. CORTISONE ACETATE [Suspect]
     Active Substance: CORTISONE ACETATE
     Dosage: UNK
  146. PSEUDOEPHEDRINE HYDROCHLORIDE [Suspect]
     Active Substance: PSEUDOEPHEDRINE HYDROCHLORIDE
     Indication: Rheumatoid arthritis
     Dosage: UNK
  147. PSEUDOEPHEDRINE HYDROCHLORIDE [Suspect]
     Active Substance: PSEUDOEPHEDRINE HYDROCHLORIDE
     Dosage: UNK
  148. PSEUDOEPHEDRINE HYDROCHLORIDE [Suspect]
     Active Substance: PSEUDOEPHEDRINE HYDROCHLORIDE
     Dosage: UNK
  149. PSEUDOEPHEDRINE HYDROCHLORIDE [Suspect]
     Active Substance: PSEUDOEPHEDRINE HYDROCHLORIDE
     Dosage: UNK
  150. PSEUDOEPHEDRINE HYDROCHLORIDE [Suspect]
     Active Substance: PSEUDOEPHEDRINE HYDROCHLORIDE
     Dosage: UNK
  151. PSEUDOEPHEDRINE HYDROCHLORIDE [Suspect]
     Active Substance: PSEUDOEPHEDRINE HYDROCHLORIDE
     Dosage: UNK
  152. CETIRIZINE HYDROCHLORIDE\PSEUDOEPHEDRINE HYDROCHLORIDE [Suspect]
     Active Substance: CETIRIZINE HYDROCHLORIDE\PSEUDOEPHEDRINE HYDROCHLORIDE
     Indication: Rheumatoid arthritis
     Dosage: 10 MG, DOSE FORM: PROLONGED-RELEASE TABLET
  153. CETIRIZINE HYDROCHLORIDE\PSEUDOEPHEDRINE HYDROCHLORIDE [Suspect]
     Active Substance: CETIRIZINE HYDROCHLORIDE\PSEUDOEPHEDRINE HYDROCHLORIDE
     Dosage: UNK
  154. CETIRIZINE HYDROCHLORIDE\PSEUDOEPHEDRINE HYDROCHLORIDE [Suspect]
     Active Substance: CETIRIZINE HYDROCHLORIDE\PSEUDOEPHEDRINE HYDROCHLORIDE
     Dosage: UNK, DOSE FORM: PROLONGED-RELEASE TABLET
  155. CETIRIZINE HYDROCHLORIDE\PSEUDOEPHEDRINE HYDROCHLORIDE [Suspect]
     Active Substance: CETIRIZINE HYDROCHLORIDE\PSEUDOEPHEDRINE HYDROCHLORIDE
     Dosage: 10 MG, DOSE FORM: PROLONGED-RELEASE TABLET
  156. CETIRIZINE HYDROCHLORIDE\PSEUDOEPHEDRINE HYDROCHLORIDE [Suspect]
     Active Substance: CETIRIZINE HYDROCHLORIDE\PSEUDOEPHEDRINE HYDROCHLORIDE
     Dosage: 10 MG, DOSE FORM: PROLONGED-RELEASE TABLET, ROA : ORAL
  157. CETIRIZINE HYDROCHLORIDE\PSEUDOEPHEDRINE HYDROCHLORIDE [Suspect]
     Active Substance: CETIRIZINE HYDROCHLORIDE\PSEUDOEPHEDRINE HYDROCHLORIDE
     Dosage: UNK, DOSE FORM: PROLONGED-RELEASE TABLET
  158. TOFACITINIB CITRATE [Suspect]
     Active Substance: TOFACITINIB CITRATE
     Indication: Rheumatoid arthritis
     Dosage: 10 MG, QD (5 MG, BID)
  159. TOFACITINIB CITRATE [Suspect]
     Active Substance: TOFACITINIB CITRATE
     Indication: Psoriatic arthropathy
     Dosage: 5 MG, TABLET
  160. TOFACITINIB CITRATE [Suspect]
     Active Substance: TOFACITINIB CITRATE
     Dosage: 5 MG, QD, TABLET
  161. TOFACITINIB CITRATE [Suspect]
     Active Substance: TOFACITINIB CITRATE
     Dosage: 5 MG, QD, TABLET
  162. TOFACITINIB CITRATE [Suspect]
     Active Substance: TOFACITINIB CITRATE
     Dosage: 5 MG, TABLET, ORAL USE
  163. TOFACITINIB CITRATE [Suspect]
     Active Substance: TOFACITINIB CITRATE
     Dosage: 5 MG, WE, TABLET ROA : ORAL
  164. TOFACITINIB CITRATE [Suspect]
     Active Substance: TOFACITINIB CITRATE
     Dosage: 10 MG, QD, TABLET
  165. TOFACITINIB CITRATE [Suspect]
     Active Substance: TOFACITINIB CITRATE
     Dosage: 5 MG BID, TABLET
  166. ERELZI [Suspect]
     Active Substance: ETANERCEPT-SZZS
     Indication: Rheumatoid arthritis
     Dosage: UNK
  167. ERELZI [Suspect]
     Active Substance: ETANERCEPT-SZZS
     Dosage: UNK
  168. ERELZI [Suspect]
     Active Substance: ETANERCEPT-SZZS
     Dosage: UNK
  169. ERELZI [Suspect]
     Active Substance: ETANERCEPT-SZZS
     Dosage: UNK, ROA: SUBCUTANEOUS
  170. ERELZI [Suspect]
     Active Substance: ETANERCEPT-SZZS
     Dosage: 20 MG, ROA: SUBCUTANEOUS
  171. ERELZI [Suspect]
     Active Substance: ETANERCEPT-SZZS
     Dosage: UNK
  172. ERELZI [Suspect]
     Active Substance: ETANERCEPT-SZZS
     Dosage: UNK, ROA: SUBCUTANEOUS
  173. ERELZI [Suspect]
     Active Substance: ETANERCEPT-SZZS
     Dosage: UNK
  174. ERELZI [Suspect]
     Active Substance: ETANERCEPT-SZZS
     Dosage: UNK
  175. ERELZI [Suspect]
     Active Substance: ETANERCEPT-SZZS
     Dosage: 20 MG, ROA: SUBCUTANEOUS
  176. ERELZI [Suspect]
     Active Substance: ETANERCEPT-SZZS
     Dosage: 50 MG
  177. ERELZI [Suspect]
     Active Substance: ETANERCEPT-SZZS
     Dosage: UNK, ROA: SUBCUTANEOUS
  178. APREMILAST [Suspect]
     Active Substance: APREMILAST
     Indication: Product used for unknown indication
     Dosage: 30 MG
  179. ARAVA [Suspect]
     Active Substance: LEFLUNOMIDE
     Indication: Rheumatoid arthritis
     Dosage: UNK
  180. ARAVA [Suspect]
     Active Substance: LEFLUNOMIDE
     Dosage: UNK, TABLET
  181. ARAVA [Suspect]
     Active Substance: LEFLUNOMIDE
     Dosage: UNK
  182. ARAVA [Suspect]
     Active Substance: LEFLUNOMIDE
     Dosage: UNK
  183. ARAVA [Suspect]
     Active Substance: LEFLUNOMIDE
     Dosage: 20 MG, TABLET
  184. ARAVA [Suspect]
     Active Substance: LEFLUNOMIDE
     Dosage: 20 MG
  185. ARAVA [Suspect]
     Active Substance: LEFLUNOMIDE
     Dosage: UNK, TABLET, ORAL USE
  186. ARAVA [Suspect]
     Active Substance: LEFLUNOMIDE
     Dosage: UNK
  187. ARAVA [Suspect]
     Active Substance: LEFLUNOMIDE
     Dosage: UNK, TABLET
  188. ORENCIA [Suspect]
     Active Substance: ABATACEPT
     Indication: Rheumatoid arthritis
     Dosage: SOLUTION FOR INFUSION, SUBCUTANEOUS USE
  189. ORENCIA [Suspect]
     Active Substance: ABATACEPT
     Dosage: UNK, DOSE FORM: SOLUTION FOR INFUSION, ROA: SUBCUTANEOUS USE
  190. ORENCIA [Suspect]
     Active Substance: ABATACEPT
     Dosage: SOLUTION FOR INFUSION, INTRAVENOUS DRIP
  191. ORENCIA [Suspect]
     Active Substance: ABATACEPT
     Dosage: UNK
  192. ORENCIA [Suspect]
     Active Substance: ABATACEPT
     Dosage: SOLUTION FOR INFUSION, INTRAVENOUS USE
  193. ORENCIA [Suspect]
     Active Substance: ABATACEPT
     Dosage: UNK, DOSE FORM: SOLUTION FOR INFUSION, ROA: INTRAVENOUS USE
  194. ORENCIA [Suspect]
     Active Substance: ABATACEPT
     Dosage: SOLUTION FOR INFUSION, SUBCUTANEOUS USE
  195. ORENCIA [Suspect]
     Active Substance: ABATACEPT
     Dosage: UNK
  196. ORENCIA [Suspect]
     Active Substance: ABATACEPT
     Dosage: SOLUTION FOR INFUSION, INTRAVENOUS USE
  197. ORENCIA [Suspect]
     Active Substance: ABATACEPT
     Dosage: DOSE FORM: SOLUTION FOR INFUSION, ROA: INTRAVENOUS DRIP
  198. ORENCIA [Suspect]
     Active Substance: ABATACEPT
     Dosage: UNK
  199. ORENCIA [Suspect]
     Active Substance: ABATACEPT
     Dosage: DOSE FORM: SOLUTION FOR INFUSION, ROA: INTRAVENOUS USE
  200. ORENCIA [Suspect]
     Active Substance: ABATACEPT
     Dosage: DOSE FORM: SOLUTION FOR INFUSION, ROA: SUBCUTANEOUS USE
  201. ORENCIA [Suspect]
     Active Substance: ABATACEPT
     Dosage: SOLUTION FOR INFUSION
  202. XELJANZ [Suspect]
     Active Substance: TOFACITINIB CITRATE
     Indication: Rheumatoid arthritis
     Dosage: 5 MG
  203. XELJANZ [Suspect]
     Active Substance: TOFACITINIB CITRATE
     Indication: Product used for unknown indication
     Dosage: 5 MG, QD, TABLET, ORAL USE
  204. XELJANZ [Suspect]
     Active Substance: TOFACITINIB CITRATE
     Dosage: 5 MG, WE, TABLET, ORAL USE
  205. XELJANZ [Suspect]
     Active Substance: TOFACITINIB CITRATE
     Dosage: 5 MG, TABLET, ORAL USE
  206. XELJANZ [Suspect]
     Active Substance: TOFACITINIB CITRATE
     Dosage: 5 MG, TABLET, ORAL USE
  207. XELJANZ [Suspect]
     Active Substance: TOFACITINIB CITRATE
     Dosage: TABLET,
  208. XELJANZ [Suspect]
     Active Substance: TOFACITINIB CITRATE
     Dosage: 5 MG, QW, TABLET , ORAL
  209. XELJANZ [Suspect]
     Active Substance: TOFACITINIB CITRATE
     Dosage: 5 MG, BID, TABLET, ORAL USE
  210. XELJANZ [Suspect]
     Active Substance: TOFACITINIB CITRATE
     Dosage: 5 MG, TABLET, ORAL USE
  211. XELJANZ [Suspect]
     Active Substance: TOFACITINIB CITRATE
     Dosage: 5 MG, TABLET, UNKNOWN
  212. XELJANZ [Suspect]
     Active Substance: TOFACITINIB CITRATE
     Dosage: 5 MG
  213. XELJANZ [Suspect]
     Active Substance: TOFACITINIB CITRATE
     Dosage: 5 MG, QD
  214. HYDROCORTISONE [Suspect]
     Active Substance: HYDROCORTISONE
     Indication: Product used for unknown indication
     Dosage: UNK, SUBCUTANEOUS USE
  215. HYDROCORTISONE [Suspect]
     Active Substance: HYDROCORTISONE
     Dosage: UNK, SUBCUTANEOUS USE
  216. HYDROCORTISONE [Suspect]
     Active Substance: HYDROCORTISONE
     Dosage: UNK
  217. HYDROCORTISONE [Suspect]
     Active Substance: HYDROCORTISONE
     Dosage: UNK, SUBCUTANEOUS USE
  218. METHOTREXATE [Suspect]
     Active Substance: METHOTREXATE
     Indication: Rheumatoid arthritis
     Dosage: 20 MG, QD
  219. METHOTREXATE [Suspect]
     Active Substance: METHOTREXATE
     Dosage: 25 MG, QD
  220. METHOTREXATE [Suspect]
     Active Substance: METHOTREXATE
     Dosage: 15 MG, QD
  221. METHOTREXATE [Suspect]
     Active Substance: METHOTREXATE
     Dosage: 2 MG, QD (1 MG, BID)
  222. METHOTREXATE [Suspect]
     Active Substance: METHOTREXATE
     Dosage: 20 MG, QD
  223. METHOTREXATE [Suspect]
     Active Substance: METHOTREXATE
     Dosage: 20 MG, QD
  224. METHOTREXATE [Suspect]
     Active Substance: METHOTREXATE
     Dosage: 2 MG, QD (1 MG, BID)
  225. METHOTREXATE [Suspect]
     Active Substance: METHOTREXATE
     Dosage: 20 MG, WE
  226. METHOTREXATE [Suspect]
     Active Substance: METHOTREXATE
     Dosage: 25 MG, QD
  227. METHOTREXATE [Suspect]
     Active Substance: METHOTREXATE
     Dosage: 2 G QD
  228. METHOTREXATE [Suspect]
     Active Substance: METHOTREXATE
     Dosage: 1 G
  229. METHOTREXATE [Suspect]
     Active Substance: METHOTREXATE
     Dosage: UNK (1 EVERY 1 DAYS)
  230. METHOTREXATE [Suspect]
     Active Substance: METHOTREXATE
     Dosage: UNK
  231. METHOTREXATE [Suspect]
     Active Substance: METHOTREXATE
     Dosage: UNK
  232. METHOTREXATE [Suspect]
     Active Substance: METHOTREXATE
     Dosage: 25 MG, QD
  233. METHOTREXATE [Suspect]
     Active Substance: METHOTREXATE
     Dosage: 20 MG
  234. METHOTREXATE [Suspect]
     Active Substance: METHOTREXATE
     Dosage: 25 MG
  235. METHOTREXATE [Suspect]
     Active Substance: METHOTREXATE
     Dosage: 1 G, BID (2 G, QD)
  236. METHOTREXATE [Suspect]
     Active Substance: METHOTREXATE
     Dosage: UNK
  237. METHOTREXATE [Suspect]
     Active Substance: METHOTREXATE
     Dosage: 1 G,1 EVERY .5 DAYS
  238. METHOTREXATE [Suspect]
     Active Substance: METHOTREXATE
     Dosage: 25 MG
  239. METHOTREXATE [Suspect]
     Active Substance: METHOTREXATE
     Dosage: 25 MG
  240. METHOTREXATE [Suspect]
     Active Substance: METHOTREXATE
     Dosage: 20 MG
  241. METHOTREXATE [Suspect]
     Active Substance: METHOTREXATE
     Dosage: 20 MG
  242. METHOTREXATE [Suspect]
     Active Substance: METHOTREXATE
     Dosage: 25 MG
  243. METHOTREXATE [Suspect]
     Active Substance: METHOTREXATE
     Dosage: 20 MG, QD
  244. METHOTREXATE [Suspect]
     Active Substance: METHOTREXATE
     Dosage: 20 MG, QD
  245. METHOTREXATE [Suspect]
     Active Substance: METHOTREXATE
     Dosage: UNK, QD (20000 UNK, QD)
  246. METHOTREXATE [Suspect]
     Active Substance: METHOTREXATE
     Dosage: 1 DOSAGE FORM, QW
  247. METHOTREXATE [Suspect]
     Active Substance: METHOTREXATE
     Dosage: 1 DOSAGE FORM, QW
  248. METHOTREXATE [Suspect]
     Active Substance: METHOTREXATE
     Dosage: UNK
  249. METHOTREXATE [Suspect]
     Active Substance: METHOTREXATE
     Dosage: 20 MG
  250. METHOTREXATE [Suspect]
     Active Substance: METHOTREXATE
     Dosage: 25 MG, QW
  251. METHOTREXATE [Suspect]
     Active Substance: METHOTREXATE
     Dosage: UNK
  252. METHOTREXATE [Suspect]
     Active Substance: METHOTREXATE
     Dosage: UNK, QD
  253. METHOTREXATE [Suspect]
     Active Substance: METHOTREXATE
     Dosage: 2 G
  254. METHOTREXATE [Suspect]
     Active Substance: METHOTREXATE
     Dosage: 1 G
  255. HUMIRA [Suspect]
     Active Substance: ADALIMUMAB
     Indication: Rheumatoid arthritis
     Dosage: 40 MG
  256. HUMIRA [Suspect]
     Active Substance: ADALIMUMAB
     Indication: Psoriatic arthropathy
  257. NAPROXEN SODIUM [Suspect]
     Active Substance: NAPROXEN SODIUM
     Indication: Product used for unknown indication
     Dosage: 500 MG
  258. NAPROXEN SODIUM [Suspect]
     Active Substance: NAPROXEN SODIUM
     Indication: Rheumatoid arthritis
     Dosage: UNK
  259. NAPROXEN SODIUM [Suspect]
     Active Substance: NAPROXEN SODIUM
     Dosage: UNK
  260. NAPROXEN SODIUM [Suspect]
     Active Substance: NAPROXEN SODIUM
     Dosage: UNK
  261. PREDNISONE [Suspect]
     Active Substance: PREDNISONE
     Indication: Rheumatoid arthritis
     Dosage: UNK
  262. PREDNISONE [Suspect]
     Active Substance: PREDNISONE
     Dosage: ROA: ORAL, DOSE FORM TABLET
  263. PREDNISONE [Suspect]
     Active Substance: PREDNISONE
     Dosage: ROA: ORAL, DOSE FORM TABLET
  264. PREGABALIN [Suspect]
     Active Substance: PREGABALIN
     Indication: Product used for unknown indication
     Dosage: UNK
  265. PREDNISONE [Suspect]
     Active Substance: PREDNISONE
     Indication: Rheumatoid arthritis
     Dosage: DOSE FORM: TABLET AND ROA: ORAL
  266. PREDNISONE [Suspect]
     Active Substance: PREDNISONE
     Dosage: DOSE FORM: TABLET
  267. PREDNISONE [Suspect]
     Active Substance: PREDNISONE
     Dosage: DOSE FORM: TABLET
  268. PREDNISONE [Suspect]
     Active Substance: PREDNISONE
     Dosage: DOSE FORM: TABLET
  269. PREDNISONE [Suspect]
     Active Substance: PREDNISONE
     Dosage: DOSE FORM: TABLET
  270. PREDNISONE [Suspect]
     Active Substance: PREDNISONE
     Dosage: DOSE FORM: TABLET
  271. HYDROXYCHLOROQUINE [Suspect]
     Active Substance: HYDROXYCHLOROQUINE
     Indication: Rheumatoid arthritis
     Dosage: 40 MG, QD
  272. HYDROXYCHLOROQUINE [Suspect]
     Active Substance: HYDROXYCHLOROQUINE
     Dosage: 400 MG, QD
  273. HYDROXYCHLOROQUINE [Suspect]
     Active Substance: HYDROXYCHLOROQUINE
     Dosage: 400 MG, QD
  274. HYDROXYCHLOROQUINE [Suspect]
     Active Substance: HYDROXYCHLOROQUINE
     Dosage: 400 MG, QD
  275. HYDROXYCHLOROQUINE [Suspect]
     Active Substance: HYDROXYCHLOROQUINE
     Dosage: 420 MG, QD
  276. HYDROXYCHLOROQUINE [Suspect]
     Active Substance: HYDROXYCHLOROQUINE
     Dosage: 400 MG, QD
  277. PREDNISONE [Suspect]
     Active Substance: PREDNISONE
     Indication: Rheumatoid arthritis
     Dosage: 5 MG, DOSE FORM: TABLET AND ROA: ORAL
  278. PREDNISONE [Suspect]
     Active Substance: PREDNISONE
     Indication: Condition aggravated
     Dosage: 40 MG, DOSE FORM: TABLET AND ROA: ORAL
  279. PREDNISONE [Suspect]
     Active Substance: PREDNISONE
     Indication: Psoriatic arthropathy
     Dosage: UNK
  280. PREDNISONE [Suspect]
     Active Substance: PREDNISONE
     Dosage: UNK, DOSE FORM: TABLET AND ROA: ORAL
  281. PREDNISONE [Suspect]
     Active Substance: PREDNISONE
     Dosage: UNK
  282. PREDNISONE [Suspect]
     Active Substance: PREDNISONE
     Dosage: UNK, ROA: ORAL
  283. PREDNISONE [Suspect]
     Active Substance: PREDNISONE
     Dosage: 1 MG, DOSE FORM: TABLET AND ROA: ORAL
  284. PREDNISONE [Suspect]
     Active Substance: PREDNISONE
     Dosage: UNK, DOSE FORM: TABLET AND ROA: INTRAVENOUS USE
  285. PREDNISONE [Suspect]
     Active Substance: PREDNISONE
     Dosage: 7.5 MG, ORAL USE AND TABLET
  286. PREDNISONE [Suspect]
     Active Substance: PREDNISONE
     Indication: Rheumatoid arthritis
     Dosage: 40 MG
  287. PREDNISONE [Suspect]
     Active Substance: PREDNISONE
     Dosage: 5 MG
  288. PREDNISONE [Suspect]
     Active Substance: PREDNISONE
     Dosage: 1 MG
  289. PREDNISONE [Suspect]
     Active Substance: PREDNISONE
     Dosage: 3 MG
  290. PREDNISONE [Suspect]
     Active Substance: PREDNISONE
     Dosage: UNK
  291. PREDNISONE [Suspect]
     Active Substance: PREDNISONE
     Dosage: 40 MG
  292. ACETAMINOPHEN [Suspect]
     Active Substance: ACETAMINOPHEN
     Indication: Product used for unknown indication
     Dosage: 10 MG
  293. ACETAMINOPHEN [Suspect]
     Active Substance: ACETAMINOPHEN
     Dosage: UNK
  294. CELEBREX [Suspect]
     Active Substance: CELECOXIB
     Indication: Rheumatoid arthritis
     Dosage: UNK
  295. CELEBREX [Suspect]
     Active Substance: CELECOXIB
     Dosage: 200 MG
  296. CELEBREX [Suspect]
     Active Substance: CELECOXIB
     Dosage: UNK
  297. DESOXIMETASONE [Suspect]
     Active Substance: DESOXIMETASONE
     Indication: Rheumatoid arthritis
     Dosage: UNK
  298. DESOXIMETASONE [Suspect]
     Active Substance: DESOXIMETASONE
     Indication: Product used for unknown indication
     Dosage: UNK
  299. DESOXIMETASONE [Suspect]
     Active Substance: DESOXIMETASONE
     Dosage: UNK
  300. DESOXIMETASONE [Suspect]
     Active Substance: DESOXIMETASONE
     Dosage: UNK
  301. DESOXIMETASONE [Suspect]
     Active Substance: DESOXIMETASONE
     Dosage: 20 MG
  302. DESOXIMETASONE [Suspect]
     Active Substance: DESOXIMETASONE
     Dosage: UNK
  303. DESOXIMETASONE [Suspect]
     Active Substance: DESOXIMETASONE
     Dosage: UNK
  304. DESOXIMETASONE [Suspect]
     Active Substance: DESOXIMETASONE
     Dosage: UNK
  305. DESOXIMETASONE [Suspect]
     Active Substance: DESOXIMETASONE
     Dosage: 20 MG, WE
  306. DESOXIMETASONE [Suspect]
     Active Substance: DESOXIMETASONE
     Dosage: UNK
  307. DESOXIMETASONE [Suspect]
     Active Substance: DESOXIMETASONE
     Dosage: UNK
  308. DESOXIMETASONE [Suspect]
     Active Substance: DESOXIMETASONE
     Dosage: 25 MG
  309. DESOXIMETASONE [Suspect]
     Active Substance: DESOXIMETASONE
     Dosage: 25 MG (1 EVERY 1 WEEKS)
  310. LEFLUNOMIDE [Suspect]
     Active Substance: LEFLUNOMIDE
     Indication: Rheumatoid arthritis
     Dosage: UNK
  311. LEFLUNOMIDE [Suspect]
     Active Substance: LEFLUNOMIDE
     Indication: Product used for unknown indication
     Dosage: UNK
  312. LEFLUNOMIDE [Suspect]
     Active Substance: LEFLUNOMIDE
     Dosage: UNK
  313. LEFLUNOMIDE [Suspect]
     Active Substance: LEFLUNOMIDE
     Dosage: 20 MG, QD
  314. NAPROXEN [Suspect]
     Active Substance: NAPROXEN
     Indication: Rheumatoid arthritis
     Dosage: 1000 MG, QD (500 MG, BID)
  315. NAPROXEN [Suspect]
     Active Substance: NAPROXEN
     Dosage: 500 MG, BID (1000 MG, QD)
  316. FOLIC ACID [Suspect]
     Active Substance: FOLIC ACID
     Indication: Rheumatoid arthritis
     Dosage: 3 MG
  317. FOLIC ACID [Suspect]
     Active Substance: FOLIC ACID
     Dosage: 5 MG
  318. FOLIC ACID [Suspect]
     Active Substance: FOLIC ACID
     Dosage: 5 MG
  319. FOLIC ACID [Suspect]
     Active Substance: FOLIC ACID
     Dosage: 3 MG
  320. FOLIC ACID [Suspect]
     Active Substance: FOLIC ACID
     Dosage: 1 MG
  321. FOLIC ACID [Suspect]
     Active Substance: FOLIC ACID
     Dosage: 500 MG
  322. FOLIC ACID [Suspect]
     Active Substance: FOLIC ACID
     Dosage: 1 MG
  323. FOLIC ACID [Suspect]
     Active Substance: FOLIC ACID
     Dosage: 25 MG
  324. FOLIC ACID [Suspect]
     Active Substance: FOLIC ACID
     Dosage: 0.5 MG
  325. CIMZIA [Suspect]
     Active Substance: CERTOLIZUMAB PEGOL
     Indication: Rheumatoid arthritis
     Dosage: 1 DOSAGE FORM
  326. CIMZIA [Suspect]
     Active Substance: CERTOLIZUMAB PEGOL
     Indication: Product used for unknown indication
     Dosage: UNK
  327. CIMZIA [Suspect]
     Active Substance: CERTOLIZUMAB PEGOL
     Indication: Psoriasis
     Dosage: UNK
  328. CIMZIA [Suspect]
     Active Substance: CERTOLIZUMAB PEGOL
     Dosage: UNK
  329. CIMZIA [Suspect]
     Active Substance: CERTOLIZUMAB PEGOL
     Dosage: UNK
  330. CIMZIA [Suspect]
     Active Substance: CERTOLIZUMAB PEGOL
     Dosage: 400 MG
  331. CIMZIA [Suspect]
     Active Substance: CERTOLIZUMAB PEGOL
     Dosage: UNK
  332. CIMZIA [Suspect]
     Active Substance: CERTOLIZUMAB PEGOL
     Dosage: UNK
  333. SULFASALAZINE [Suspect]
     Active Substance: SULFASALAZINE
     Indication: Rheumatoid arthritis
     Dosage: 1000 MG, QD (500 MG, BID)
  334. SULFASALAZINE [Suspect]
     Active Substance: SULFASALAZINE
     Indication: Product used for unknown indication
     Dosage: 500 MG
  335. SULFASALAZINE [Suspect]
     Active Substance: SULFASALAZINE
     Dosage: 1 G, QD
  336. SULFASALAZINE [Suspect]
     Active Substance: SULFASALAZINE
     Dosage: 1 G
  337. SULFASALAZINE [Suspect]
     Active Substance: SULFASALAZINE
     Dosage: 2 G, QD (1 G, BID)
  338. SULFASALAZINE [Suspect]
     Active Substance: SULFASALAZINE
     Dosage: 500 MG,
  339. SULFASALAZINE [Suspect]
     Active Substance: SULFASALAZINE
     Dosage: 2 G, (2 EVERY 1 DAYS)
  340. SULFASALAZINE [Suspect]
     Active Substance: SULFASALAZINE
     Dosage: 2G (2 EVERY 1 DAYS)
  341. SULFASALAZINE [Suspect]
     Active Substance: SULFASALAZINE
     Dosage: 1000 MG, BID (2 EVERY 1 DAYS)
  342. SULFASALAZINE [Suspect]
     Active Substance: SULFASALAZINE
     Dosage: 2 G Q12H
  343. SULFASALAZINE [Suspect]
     Active Substance: SULFASALAZINE
     Dosage: 1 G Q12H
  344. SULFASALAZINE [Suspect]
     Active Substance: SULFASALAZINE
     Dosage: 1000 MG (1 EVERY 1 DAYS)
  345. SULFASALAZINE [Suspect]
     Active Substance: SULFASALAZINE
     Dosage: 500 MG, BID (1000 MG, QD)
  346. SULFASALAZINE [Suspect]
     Active Substance: SULFASALAZINE
     Dosage: 500 MG
  347. SULFASALAZINE [Suspect]
     Active Substance: SULFASALAZINE
     Dosage: 500 MG
  348. SULFASALAZINE [Suspect]
     Active Substance: SULFASALAZINE
     Dosage: 10 MG
  349. SULFASALAZINE [Suspect]
     Active Substance: SULFASALAZINE
     Dosage: 1 G,1 EVERY .5 DAYS
  350. SULFASALAZINE [Suspect]
     Active Substance: SULFASALAZINE
     Dosage: 500 MG
  351. SULFASALAZINE [Suspect]
     Active Substance: SULFASALAZINE
     Dosage: 1 G,1 EVERY .5 DAYS
  352. SULFASALAZINE [Suspect]
     Active Substance: SULFASALAZINE
     Dosage: UNK
  353. SULFASALAZINE [Suspect]
     Active Substance: SULFASALAZINE
     Dosage: 1 G
  354. SULFASALAZINE [Suspect]
     Active Substance: SULFASALAZINE
     Dosage: 1 G
  355. SULFASALAZINE [Suspect]
     Active Substance: SULFASALAZINE
     Dosage: 500 MG
  356. SULFASALAZINE [Suspect]
     Active Substance: SULFASALAZINE
     Dosage: 1 G,1 EVERY .5 DAYS
  357. SULFASALAZINE [Suspect]
     Active Substance: SULFASALAZINE
     Dosage: 10 MG
  358. SULFASALAZINE [Suspect]
     Active Substance: SULFASALAZINE
     Dosage: UNK
  359. SULFASALAZINE [Suspect]
     Active Substance: SULFASALAZINE
     Dosage: 1 G,1 EVERY .5 DAYS
  360. REMICADE [Suspect]
     Active Substance: INFLIXIMAB
     Indication: Rheumatoid arthritis
     Dosage: UNK (POWDER FOR SOLUTION)
  361. REMICADE [Suspect]
     Active Substance: INFLIXIMAB
     Dosage: UNK (POWDER FOR SOLUTION)
  362. REMICADE [Suspect]
     Active Substance: INFLIXIMAB
     Dosage: UNK, POWDER FOR SOLUTION
  363. SIMPONI [Suspect]
     Active Substance: GOLIMUMAB
     Indication: Rheumatoid arthritis
     Dosage: 50 MG, DOSE FORM: SOLUTION
  364. SIMPONI [Suspect]
     Active Substance: GOLIMUMAB
     Dosage: 50 MG, DOSE FORM: SOLUTION
  365. SIMPONI [Suspect]
     Active Substance: GOLIMUMAB
     Dosage: UNK
  366. SIMPONI [Suspect]
     Active Substance: GOLIMUMAB
     Dosage: UNK
  367. SIMPONI [Suspect]
     Active Substance: GOLIMUMAB
     Dosage: UNK, DOSE FORM: SOLUTION
  368. SIMPONI [Suspect]
     Active Substance: GOLIMUMAB
     Dosage: UNK
  369. SIMPONI [Suspect]
     Active Substance: GOLIMUMAB
     Dosage: UNK, DOSE FORM: SOLUTION
  370. CALCIUM GLUCONATE [Suspect]
     Active Substance: CALCIUM GLUCONATE
     Indication: Product used for unknown indication
     Dosage: UNK
  371. CALCIUM GLUCONATE [Suspect]
     Active Substance: CALCIUM GLUCONATE
     Dosage: UNK
  372. CALCIUM GLUCONATE [Suspect]
     Active Substance: CALCIUM GLUCONATE
     Dosage: UNK
  373. OTEZLA [Suspect]
     Active Substance: APREMILAST
     Indication: Rheumatoid arthritis
     Dosage: 3 MG, BID (2 EVERY 1 DAYS)
  374. OTEZLA [Suspect]
     Active Substance: APREMILAST
     Dosage: 3 MG
  375. ACTEMRA [Suspect]
     Active Substance: TOCILIZUMAB
     Indication: Rheumatoid arthritis
     Dosage: UNK
  376. ACTEMRA [Suspect]
     Active Substance: TOCILIZUMAB
     Indication: Product used for unknown indication
     Dosage: UNK
  377. ACTEMRA [Suspect]
     Active Substance: TOCILIZUMAB
     Dosage: UNK
  378. ACTEMRA [Suspect]
     Active Substance: TOCILIZUMAB
     Dosage: UNK, SUBCUTANEOUS
  379. ACTEMRA [Suspect]
     Active Substance: TOCILIZUMAB
     Dosage: 2912 MG, INTRAVENOUS USE
  380. ACTEMRA [Suspect]
     Active Substance: TOCILIZUMAB
     Dosage: UNK
  381. ACTEMRA [Suspect]
     Active Substance: TOCILIZUMAB
     Dosage: UNK, INTRAVENOUS (NOT OTHERWISE SPECIFIED)
  382. ACTEMRA [Suspect]
     Active Substance: TOCILIZUMAB
     Dosage: 1311.2 MG
  383. ACTEMRA [Suspect]
     Active Substance: TOCILIZUMAB
     Dosage: UNK, ORAL USE
  384. ACTEMRA [Suspect]
     Active Substance: TOCILIZUMAB
     Dosage: 752.8 MG
  385. ACTEMRA [Suspect]
     Active Substance: TOCILIZUMAB
     Dosage: UNK
  386. ACTEMRA [Suspect]
     Active Substance: TOCILIZUMAB
     Dosage: UNK, INTRAVENOUS USE
  387. ACTEMRA [Suspect]
     Active Substance: TOCILIZUMAB
     Dosage: 488 MG, INTRAVENOUS USE
  388. ACTEMRA [Suspect]
     Active Substance: TOCILIZUMAB
     Dosage: 472 MG, INTRAVENOUS USE
  389. ACTEMRA [Suspect]
     Active Substance: TOCILIZUMAB
     Dosage: UNK
  390. ACTEMRA [Suspect]
     Active Substance: TOCILIZUMAB
     Dosage: UNK, SUBCUTANEOUS USE
  391. ACTEMRA [Suspect]
     Active Substance: TOCILIZUMAB
     Dosage: 752 MG, INTRAVENOUS USE
  392. ACTEMRA [Suspect]
     Active Substance: TOCILIZUMAB
     Dosage: 750 MG
  393. ACTEMRA [Suspect]
     Active Substance: TOCILIZUMAB
     Dosage: 504 MG, INTRAVENOUS USE
  394. ACTEMRA [Suspect]
     Active Substance: TOCILIZUMAB
     Dosage: 3011.2 MG, INTRAVENOUS USE
  395. ACTEMRA [Suspect]
     Active Substance: TOCILIZUMAB
     Dosage: 2913 MG
  396. ACTEMRA [Suspect]
     Active Substance: TOCILIZUMAB
     Dosage: UNK, SUBCUTANEOUS USE
  397. ACTEMRA [Suspect]
     Active Substance: TOCILIZUMAB
     Dosage: UNK (TOPICAL)
  398. ACTEMRA [Suspect]
     Active Substance: TOCILIZUMAB
     Dosage: UNK (TOPICAL)
  399. GOLIMUMAB [Suspect]
     Active Substance: GOLIMUMAB
     Indication: Product used for unknown indication
     Dosage: UNK
  400. GOLIMUMAB [Suspect]
     Active Substance: GOLIMUMAB
     Dosage: UNK
  401. GOLIMUMAB [Suspect]
     Active Substance: GOLIMUMAB
     Dosage: UNK
  402. DOXYCYCLINE [Suspect]
     Active Substance: DOXYCYCLINE
     Indication: Product used for unknown indication
     Dosage: 40 MG
  403. ASCORBIC ACID [Suspect]
     Active Substance: ASCORBIC ACID
     Indication: Product used for unknown indication
     Dosage: UNK
  404. ASCORBIC ACID [Suspect]
     Active Substance: ASCORBIC ACID
     Dosage: UNK
  405. ASCORBIC ACID [Suspect]
     Active Substance: ASCORBIC ACID
  406. ALENDRONATE SODIUM [Suspect]
     Active Substance: ALENDRONATE SODIUM
     Indication: Rheumatoid arthritis
  407. CHLORAPREP [Suspect]
     Active Substance: CHLORHEXIDINE GLUCONATE\ISOPROPYL ALCOHOL
     Indication: Product used for unknown indication
     Dosage: UNK (TOPICAL)
  408. CHLORAPREP [Suspect]
     Active Substance: CHLORHEXIDINE GLUCONATE\ISOPROPYL ALCOHOL
     Dosage: UNK (TOPICAL)
  409. CHLORAPREP [Suspect]
     Active Substance: CHLORHEXIDINE GLUCONATE\ISOPROPYL ALCOHOL
     Dosage: UNK (TOPICAL)
  410. NEOMYCIN [Suspect]
     Active Substance: NEOMYCIN
     Indication: Product used for unknown indication
     Dosage: UNK
  411. NEOMYCIN [Suspect]
     Active Substance: NEOMYCIN
     Dosage: UNK
  412. CETIRIZINE HYDROCHLORIDE\PSEUDOEPHEDRINE HYDROCHLORIDE [Suspect]
     Active Substance: CETIRIZINE HYDROCHLORIDE\PSEUDOEPHEDRINE HYDROCHLORIDE
     Indication: Rheumatoid arthritis
     Dosage: 10 MG
  413. CETIRIZINE HYDROCHLORIDE\PSEUDOEPHEDRINE HYDROCHLORIDE [Suspect]
     Active Substance: CETIRIZINE HYDROCHLORIDE\PSEUDOEPHEDRINE HYDROCHLORIDE
     Dosage: 25 MG
  414. KEVZARA [Suspect]
     Active Substance: SARILUMAB
     Indication: Rheumatoid arthritis
     Dosage: UNK
  415. KEVZARA [Suspect]
     Active Substance: SARILUMAB
     Dosage: UNK
  416. TUMS ULTRA [Suspect]
     Active Substance: CALCIUM CARBONATE
     Indication: Product used for unknown indication
  417. PANTOPRAZOLE SODIUM ANHYDROUS [Concomitant]
     Active Substance: PANTOPRAZOLE SODIUM ANHYDROUS
     Indication: Product used for unknown indication
     Dosage: UNK
  418. PANTOPRAZOLE SODIUM ANHYDROUS [Concomitant]
     Active Substance: PANTOPRAZOLE SODIUM ANHYDROUS
     Dosage: UNK
  419. RISEDRONATE SODIUM [Concomitant]
     Active Substance: RISEDRONATE SODIUM
     Indication: Product used for unknown indication
     Dosage: UNK
  420. RISEDRONATE SODIUM [Concomitant]
     Active Substance: RISEDRONATE SODIUM
     Dosage: UNK
  421. RISEDRONATE SODIUM [Concomitant]
     Active Substance: RISEDRONATE SODIUM
     Dosage: UNK
  422. ERGOCALCIFEROL [Concomitant]
     Active Substance: ERGOCALCIFEROL
     Indication: Product used for unknown indication
     Dosage: UNK
  423. ERGOCALCIFEROL [Concomitant]
     Active Substance: ERGOCALCIFEROL
     Dosage: UNK
  424. ERGOCALCIFEROL [Concomitant]
     Active Substance: ERGOCALCIFEROL
     Dosage: UNK
  425. ELBASVIR [Concomitant]
     Active Substance: ELBASVIR
     Indication: Product used for unknown indication
     Dosage: UNK
  426. ELBASVIR [Concomitant]
     Active Substance: ELBASVIR
     Dosage: UNK
  427. ELBASVIR [Concomitant]
     Active Substance: ELBASVIR
     Dosage: UNK
  428. CAFFEINE [Concomitant]
     Active Substance: CAFFEINE
     Indication: Product used for unknown indication
     Dosage: UNK
  429. CAFFEINE [Concomitant]
     Active Substance: CAFFEINE
     Dosage: UNK
  430. CAFFEINE [Concomitant]
     Active Substance: CAFFEINE
     Dosage: UNK
  431. PANTOPRAZOLE SODIUM [Concomitant]
     Active Substance: PANTOPRAZOLE SODIUM
     Indication: Product used for unknown indication
     Dosage: UNK
  432. PANTOPRAZOLE SODIUM [Concomitant]
     Active Substance: PANTOPRAZOLE SODIUM
     Dosage: UNK
  433. QUETIAPINE FUMARATE [Concomitant]
     Active Substance: QUETIAPINE FUMARATE
     Indication: Product used for unknown indication
     Dosage: UNK
  434. QUETIAPINE FUMARATE [Concomitant]
     Active Substance: QUETIAPINE FUMARATE
     Dosage: UNK
  435. QUETIAPINE FUMARATE [Concomitant]
     Active Substance: QUETIAPINE FUMARATE
     Dosage: UNK
  436. QUETIAPINE FUMARATE [Concomitant]
     Active Substance: QUETIAPINE FUMARATE
     Dosage: UNK
  437. PANTOPRAZOLE SODIUM [Concomitant]
     Active Substance: PANTOPRAZOLE SODIUM
     Indication: Product used for unknown indication
     Dosage: UNK
  438. PIROXICAM [Concomitant]
     Active Substance: PIROXICAM
     Indication: Product used for unknown indication
     Dosage: UNK
  439. PIROXICAM [Concomitant]
     Active Substance: PIROXICAM
     Dosage: UNK
  440. PIROXICAM [Concomitant]
     Active Substance: PIROXICAM
     Dosage: UNK
  441. FISH OIL [Concomitant]
     Active Substance: FISH OIL
     Indication: Product used for unknown indication
     Dosage: UNK
  442. FISH OIL [Concomitant]
     Active Substance: FISH OIL
     Dosage: UNK, CAPSULE
  443. FISH OIL [Concomitant]
     Active Substance: FISH OIL
     Dosage: UNK
  444. PREDNISOLONE [Concomitant]
     Active Substance: PREDNISOLONE
     Indication: Product used for unknown indication
     Dosage: UNK
  445. PREDNISOLONE [Concomitant]
     Active Substance: PREDNISOLONE
     Dosage: UNK
  446. PREDNISOLONE [Concomitant]
     Active Substance: PREDNISOLONE
     Dosage: UNK
  447. MAGNESIUM [Concomitant]
     Active Substance: MAGNESIUM
     Indication: Product used for unknown indication
     Dosage: UNK
  448. MAGNESIUM [Concomitant]
     Active Substance: MAGNESIUM
     Dosage: UNK
  449. RAMIPRIL [Concomitant]
     Active Substance: RAMIPRIL
     Indication: Product used for unknown indication
     Dosage: UNK
  450. RAMIPRIL [Concomitant]
     Active Substance: RAMIPRIL
     Dosage: UNK
  451. RAMIPRIL [Concomitant]
     Active Substance: RAMIPRIL
     Dosage: UNK
  452. GLUCOSAMINE [Concomitant]
     Active Substance: GLUCOSAMINE
     Indication: Product used for unknown indication
     Dosage: UNK
  453. GLUCOSAMINE [Concomitant]
     Active Substance: GLUCOSAMINE
     Dosage: UNK
  454. GLUCOSAMINE [Concomitant]
     Active Substance: GLUCOSAMINE
     Dosage: UNK
  455. CALCIUM GLUBIONATE [Concomitant]
     Active Substance: CALCIUM GLUBIONATE
     Indication: Product used for unknown indication
     Dosage: UNK
  456. CALCIUM GLUBIONATE [Concomitant]
     Active Substance: CALCIUM GLUBIONATE
     Dosage: UNK
  457. CALCIUM GLUBIONATE [Concomitant]
     Active Substance: CALCIUM GLUBIONATE
     Dosage: UNK
  458. LISINOPRIL [Concomitant]
     Active Substance: LISINOPRIL
     Indication: Product used for unknown indication
     Dosage: UNK
  459. LISINOPRIL [Concomitant]
     Active Substance: LISINOPRIL
     Dosage: UNK
  460. LISINOPRIL [Concomitant]
     Active Substance: LISINOPRIL
     Dosage: UNK
  461. IBUPROFEN [Concomitant]
     Active Substance: IBUPROFEN
     Indication: Product used for unknown indication
     Dosage: UNK
  462. IBUPROFEN [Concomitant]
     Active Substance: IBUPROFEN
     Dosage: UNK
  463. IBUPROFEN [Concomitant]
     Active Substance: IBUPROFEN
     Dosage: UNK
  464. ATIVAN [Concomitant]
     Active Substance: LORAZEPAM
     Indication: Anxiety
     Dosage: 2 MG
  465. MELOXICAM [Concomitant]
     Active Substance: MELOXICAM
     Indication: Product used for unknown indication
     Dosage: UNK
  466. MELOXICAM [Concomitant]
     Active Substance: MELOXICAM
     Dosage: UNK
  467. MELOXICAM [Concomitant]
     Active Substance: MELOXICAM
     Dosage: UNK
  468. LANSOPRAZOLE [Concomitant]
     Active Substance: LANSOPRAZOLE
     Indication: Product used for unknown indication
     Dosage: UNK (DELAYED RELEASE)
  469. LANSOPRAZOLE [Concomitant]
     Active Substance: LANSOPRAZOLE
     Dosage: UNK (DELAYED RELEASE)
  470. LANSOPRAZOLE [Concomitant]
     Active Substance: LANSOPRAZOLE
     Dosage: UNK
  471. LANSOPRAZOLE [Concomitant]
     Active Substance: LANSOPRAZOLE
     Dosage: UNK
  472. LANSOPRAZOLE [Concomitant]
     Active Substance: LANSOPRAZOLE
     Dosage: UNK
  473. CHOLECALCIFEROL [Concomitant]
     Active Substance: CHOLECALCIFEROL
     Indication: Product used for unknown indication
     Dosage: UNK
  474. CHOLECALCIFEROL [Concomitant]
     Active Substance: CHOLECALCIFEROL
     Dosage: UNK
  475. CHOLECALCIFEROL [Concomitant]
     Active Substance: CHOLECALCIFEROL
     Dosage: UNK
  476. VITAMIN D3 [Concomitant]
     Active Substance: CHOLECALCIFEROL
     Indication: Product used for unknown indication
     Dosage: UNK
  477. VITAMIN D3 [Concomitant]
     Active Substance: CHOLECALCIFEROL
     Dosage: UNK
  478. VITAMIN D3 [Concomitant]
     Active Substance: CHOLECALCIFEROL
     Dosage: UNK
  479. QUETIAPINE [Concomitant]
     Active Substance: QUETIAPINE
     Indication: Product used for unknown indication
     Dosage: UNK
  480. QUETIAPINE [Concomitant]
     Active Substance: QUETIAPINE
     Dosage: UNK
  481. QUETIAPINE FUMARATE [Concomitant]
     Active Substance: QUETIAPINE FUMARATE
     Indication: Product used for unknown indication
     Dosage: UNK
  482. QUETIAPINE FUMARATE [Concomitant]
     Active Substance: QUETIAPINE FUMARATE
     Dosage: UNK
  483. MINERALS\VITAMINS [Concomitant]
     Active Substance: MINERALS\VITAMINS
     Indication: Product used for unknown indication
  484. LORAZEPAM [Concomitant]
     Active Substance: LORAZEPAM
     Indication: Product used for unknown indication
     Dosage: UNK
  485. CYANOCOBALAMIN [Concomitant]
     Active Substance: CYANOCOBALAMIN
     Indication: Product used for unknown indication
     Dosage: UNK
  486. CYANOCOBALAMIN [Concomitant]
     Active Substance: CYANOCOBALAMIN
     Dosage: UNK

REACTIONS (89)
  - Liver injury [Fatal]
  - Arthropathy [Unknown]
  - Condition aggravated [Unknown]
  - Contraindicated product administered [Unknown]
  - Discomfort [Unknown]
  - Drug intolerance [Unknown]
  - Duodenal ulcer perforation [Unknown]
  - Fibromyalgia [Unknown]
  - General physical health deterioration [Unknown]
  - Glossodynia [Unknown]
  - Hand deformity [Unknown]
  - Headache [Unknown]
  - Helicobacter infection [Unknown]
  - Hepatic enzyme increased [Unknown]
  - Pyrexia [Unknown]
  - Rash pruritic [Unknown]
  - Rheumatoid arthritis [Unknown]
  - Road traffic accident [Unknown]
  - Sleep disorder due to general medical condition, insomnia type [Unknown]
  - Stomatitis [Unknown]
  - Sleep disorder [Not Recovered/Not Resolved]
  - Gait inability [Not Recovered/Not Resolved]
  - Injury [Fatal]
  - Peripheral swelling [Fatal]
  - Hypertension [Fatal]
  - Leukopenia [Fatal]
  - Therapeutic product effect decreased [Fatal]
  - Hypertransaminasaemia [Fatal]
  - Sciatica [Not Recovered/Not Resolved]
  - Drug hypersensitivity [Fatal]
  - Pain [Fatal]
  - Lower respiratory tract infection [Not Recovered/Not Resolved]
  - Pruritus [Not Recovered/Not Resolved]
  - Joint swelling [Fatal]
  - Prescribed overdose [Fatal]
  - Liver disorder [Not Recovered/Not Resolved]
  - Pericarditis [Fatal]
  - Therapeutic response decreased [Fatal]
  - Pemphigus [Fatal]
  - Drug ineffective [Fatal]
  - Maternal exposure during pregnancy [Fatal]
  - Nausea [Not Recovered/Not Resolved]
  - Infusion related reaction [Fatal]
  - Off label use [Fatal]
  - Sinusitis [Not Recovered/Not Resolved]
  - Mobility decreased [Not Recovered/Not Resolved]
  - Lupus vulgaris [Not Recovered/Not Resolved]
  - Rheumatoid factor positive [Fatal]
  - Swelling [Fatal]
  - Synovitis [Fatal]
  - Rheumatic fever [Fatal]
  - Hypersensitivity [Fatal]
  - Therapy non-responder [Fatal]
  - Treatment failure [Fatal]
  - Irritable bowel syndrome [Not Recovered/Not Resolved]
  - Oedema [Fatal]
  - Product use in unapproved indication [Fatal]
  - Musculoskeletal stiffness [Fatal]
  - Hypoaesthesia [Not Recovered/Not Resolved]
  - Rash [Fatal]
  - Muscle injury [Not Recovered/Not Resolved]
  - Nasopharyngitis [Not Recovered/Not Resolved]
  - Type 2 diabetes mellitus [Fatal]
  - Swollen joint count increased [Fatal]
  - Psoriatic arthropathy [Fatal]
  - Product use issue [Fatal]
  - Malaise [Not Recovered/Not Resolved]
  - Decreased appetite [Not Recovered/Not Resolved]
  - Ulcer haemorrhage [Fatal]
  - Abdominal discomfort [Fatal]
  - Anxiety [Fatal]
  - Autoimmune disorder [Fatal]
  - Blister [Fatal]
  - C-reactive protein [Fatal]
  - Fatigue [Fatal]
  - Pregnancy [Fatal]
  - Abdominal pain upper [Fatal]
  - Alopecia [Fatal]
  - Arthralgia [Fatal]
  - Asthma [Fatal]
  - Blood cholesterol increased [Fatal]
  - Deep vein thrombosis postoperative [Fatal]
  - Live birth [Fatal]
  - Asthenia [Fatal]
  - Chest pain [Fatal]
  - Lower limb fracture [Fatal]
  - Osteoarthritis [Fatal]
  - C-reactive protein abnormal [Fatal]
  - Anti-cyclic citrullinated peptide antibody positive [Fatal]
